FAERS Safety Report 8952713 (Version 1)
Quarter: 2012Q4

REPORT INFORMATION
  Report Type: Report from Study
  Country: US (occurrence: US)
  Receive Date: 20121205
  Receipt Date: 20121205
  Transmission Date: 20130627
  Serious: Yes (Other)
  Sender: FDA-Public Use
  Company Number: US-ABBOTT-12P-163-1013241-00

PATIENT
  Age: 20 Year
  Sex: Female
  Weight: 85.35 kg

DRUGS (1)
  1. LUPRON DEPOT [Suspect]
     Indication: ENDOMETRIOSIS
     Dates: start: 20120924

REACTIONS (2)
  - Abdominal pain lower [Recovered/Resolved]
  - Appendix disorder [Recovered/Resolved]
